FAERS Safety Report 4321974-3 (Version None)
Quarter: 2004Q1

REPORT INFORMATION
  Report Type: 
  Country: None (occurrence: None)
  Receive Date: 20040323
  Receipt Date: 20040311
  Transmission Date: 20041129
  Serious: Yes (Hospitalization)
  Sender: FDA-Public Use
  Company Number: GB-BRISTOL-MYERS SQUIBB COMPANY-12533147

PATIENT
  Age: 44 Year
  Sex: Male

DRUGS (4)
  1. ZERIT [Suspect]
     Indication: HIV INFECTION
     Route: 048
  2. LAMIVUDINE [Concomitant]
  3. NEVIRAPINE [Concomitant]
  4. LORATADINE [Concomitant]

REACTIONS (1)
  - PULMONARY HYPERTENSION [None]
